FAERS Safety Report 25239393 (Version 1)
Quarter: 2025Q2

REPORT INFORMATION
  Report Type: Spontaneous
  Country: US (occurrence: US)
  Receive Date: 20250425
  Receipt Date: 20250425
  Transmission Date: 20250716
  Serious: No
  Sender: JOHNSON AND JOHNSON
  Company Number: US-JNJFOC-20250421070

PATIENT
  Sex: Female

DRUGS (6)
  1. DARZALEX FASPRO [Suspect]
     Active Substance: DARATUMUMAB\HYALURONIDASE-FIHJ
     Indication: Product used for unknown indication
     Route: 058
     Dates: start: 20250215
  2. REVLIMID [Concomitant]
     Active Substance: LENALIDOMIDE
  3. VELCADE [Concomitant]
     Active Substance: BORTEZOMIB
  4. DEXAMETHASONE [Concomitant]
     Active Substance: DEXAMETHASONE
  5. CLOBETASOL [Concomitant]
     Active Substance: CLOBETASOL
  6. ACYCLOVIR [Concomitant]
     Active Substance: ACYCLOVIR

REACTIONS (2)
  - Skin reaction [Unknown]
  - Skin reaction [Unknown]
